FAERS Safety Report 8450133-8 (Version None)
Quarter: 2012Q2

REPORT INFORMATION
  Report Type: 
  Country: None (occurrence: None)
  Receive Date: 20120613
  Receipt Date: 20120529
  Transmission Date: 20120825
  Serious: Yes (Other)
  Sender: FDA-Public Use
  Company Number: MCA-N-12-056

PATIENT
  Sex: Female

DRUGS (1)
  1. DIVALPROEX EXTENDED-RELEASE [Suspect]

REACTIONS (3)
  - HALLUCINATION [None]
  - BIPOLAR DISORDER [None]
  - MALAISE [None]
